FAERS Safety Report 6052867-1 (Version None)
Quarter: 2009Q1

REPORT INFORMATION
  Report Type: 
  Country: None (occurrence: None)
  Receive Date: 20090122
  Receipt Date: 20090108
  Transmission Date: 20090719
  Serious: No
  Sender: FDA-Public Use
  Company Number: US025276

PATIENT
  Sex: Female

DRUGS (4)
  1. FENTORA [Suspect]
     Indication: ANGIOPATHY
     Dosage: 400 UG BUCCAL
     Route: 002
  2. FENTORA [Suspect]
     Indication: NEURALGIA
     Dosage: 400 UG BUCCAL
     Route: 002
  3. FENTORA [Suspect]
     Indication: ANGIOPATHY
     Dosage: 200 UG BUCCAL
     Route: 002
  4. FENTORA [Suspect]
     Indication: NEURALGIA
     Dosage: 200 UG BUCCAL
     Route: 002

REACTIONS (2)
  - DRUG PRESCRIBING ERROR [None]
  - MEDICATION ERROR [None]
